FAERS Safety Report 25645530 (Version 1)
Quarter: 2025Q3

REPORT INFORMATION
  Report Type: Spontaneous
  Country: GB (occurrence: GB)
  Receive Date: 20250805
  Receipt Date: 20250805
  Transmission Date: 20251020
  Serious: Yes (Other)
  Sender: MYLAN
  Company Number: None

PATIENT
  Sex: Female
  Weight: 54 kg

DRUGS (4)
  1. ATORVASTATIN [Suspect]
     Active Substance: ATORVASTATIN
     Indication: Microvascular cranial nerve palsy
     Dosage: 40 MILLIGRAM, QD
     Dates: start: 20240824
  2. ATORVASTATIN [Suspect]
     Active Substance: ATORVASTATIN
     Indication: Transient ischaemic attack
     Dosage: 20 MILLIGRAM, QD
  3. AMLODIPINE [Concomitant]
     Active Substance: AMLODIPINE BESYLATE
     Indication: Transient ischaemic attack
     Dosage: 5 MILLIGRAM, BID (5MG X 2 PER DAY)
  4. CLOPIDOGREL [Concomitant]
     Active Substance: CLOPIDOGREL BISULFATE
     Indication: Transient ischaemic attack
     Dosage: 75 MILLIGRAM, QD (75 MG ?1)

REACTIONS (2)
  - Medication error [Unknown]
  - Restless legs syndrome [Recovered/Resolved]

NARRATIVE: CASE EVENT DATE: 20240824
